FAERS Safety Report 7789011-6 (Version None)
Quarter: 2011Q3

REPORT INFORMATION
  Report Type: 
  Country: None (occurrence: None)
  Receive Date: 20110930
  Receipt Date: 20110920
  Transmission Date: 20111222
  Serious: Yes (Hospitalization)
  Sender: FDA-Public Use
  Company Number: PHHY2011CA84831

PATIENT

DRUGS (1)
  1. ALISKIREN [Suspect]
     Dosage: UNK

REACTIONS (2)
  - RENAL FAILURE [None]
  - PNEUMONIA [None]
